FAERS Safety Report 4313225-0 (Version None)
Quarter: 2004Q1

REPORT INFORMATION
  Report Type: 
  Country: None (occurrence: None)
  Receive Date: 20040305
  Receipt Date: 20040220
  Transmission Date: 20041129
  Serious: Yes (Life-Threatening, Other)
  Sender: FDA-Public Use
  Company Number: A-CH2003-03382

PATIENT
  Age: 60 Year
  Sex: Female
  Weight: 82 kg

DRUGS (10)
  1. TRACLEER [Suspect]
     Indication: PULMONARY HYPERTENSION
     Dosage: SEE IMAGE
     Route: 048
     Dates: start: 20030101, end: 20030908
  2. TRACLEER [Suspect]
     Indication: PULMONARY HYPERTENSION
     Dosage: SEE IMAGE
     Route: 048
     Dates: start: 20030717
  3. TRACLEER [Suspect]
     Indication: PULMONARY HYPERTENSION
     Dosage: SEE IMAGE
     Route: 048
     Dates: start: 20031001
  4. PREDNISONE [Concomitant]
  5. PREVISCAN (FLUINDIONE) [Concomitant]
  6. BETASERC (BETAHISTINE HYDROCHLORIDE) [Concomitant]
  7. OMEPRAZOLE [Concomitant]
  8. CACIT D3 (CAL IUM CARBONATE) [Concomitant]
  9. ALDALIX  (SPIRONOLACTONE, FUROSEMIDE) [Concomitant]
  10. GINKOR (GINKGO BILOBA EXTRACT, TROXERUTIN) [Concomitant]

REACTIONS (3)
  - CARDIAC FAILURE [None]
  - CHOLESTASIS [None]
  - CYTOLYTIC HEPATITIS [None]
